FAERS Safety Report 6503916-5 (Version None)
Quarter: 2009Q4

REPORT INFORMATION
  Report Type: 
  Country: None (occurrence: None)
  Receive Date: 20091217
  Receipt Date: 20091208
  Transmission Date: 20100525
  Serious: Yes (Hospitalization)
  Sender: FDA-Public Use
  Company Number: US-CELGENEUS-163-21880-09120934

PATIENT
  Sex: Male

DRUGS (1)
  1. REVLIMID [Suspect]
     Indication: MULTIPLE MYELOMA
     Route: 048
     Dates: start: 20090101

REACTIONS (8)
  - BRONCHITIS [None]
  - DECREASED APPETITE [None]
  - EAR INFECTION [None]
  - HERNIA [None]
  - PLATELET COUNT DECREASED [None]
  - RHINORRHOEA [None]
  - SINUSITIS [None]
  - WHITE BLOOD CELL COUNT DECREASED [None]
